FAERS Safety Report 16839309 (Version 1)
Quarter: 2019Q3

REPORT INFORMATION
  Report Type: Spontaneous
  Country: US (occurrence: US)
  Receive Date: 20190731
  Receipt Date: 20190731
  Transmission Date: 20191005
  Serious: No
  Sender: FDA-Public Use
  Company Number: None

PATIENT

DRUGS (2)
  1. FLUOROURACIL. [Suspect]
     Active Substance: FLUOROURACIL
  2. FLUORESCEIN SODIUM. [Suspect]
     Active Substance: FLUORESCEIN SODIUM

REACTIONS (3)
  - Intercepted product prescribing error [None]
  - Product name confusion [None]
  - Product barcode issue [None]
